FAERS Safety Report 12144041 (Version 4)
Quarter: 2016Q4

REPORT INFORMATION
  Report Type: Report from Study
  Country: DE (occurrence: DE)
  Receive Date: 20160304
  Receipt Date: 20161213
  Transmission Date: 20170207
  Serious: Yes (Death, Hospitalization, Other)
  Sender: FDA-Public Use
  Company Number: DE-ROCHE-1720755

PATIENT
  Age: 88 Year
  Sex: Male
  Weight: 67 kg

DRUGS (3)
  1. ESBRIET [Suspect]
     Active Substance: PIRFENIDONE
     Route: 048
  2. ESBRIET [Suspect]
     Active Substance: PIRFENIDONE
     Indication: IDIOPATHIC PULMONARY FIBROSIS
     Route: 048
     Dates: start: 20160222
  3. ESBRIET [Suspect]
     Active Substance: PIRFENIDONE
     Route: 048
     Dates: start: 20160404, end: 20160405

REACTIONS (6)
  - Malaise [Recovering/Resolving]
  - Sneezing [Recovering/Resolving]
  - Rhinorrhoea [Recovering/Resolving]
  - General physical health deterioration [Fatal]
  - Night sweats [Recovering/Resolving]
  - Cardiac failure [Fatal]

NARRATIVE: CASE EVENT DATE: 20160224
